FAERS Safety Report 25838751 (Version 1)
Quarter: 2025Q3

REPORT INFORMATION
  Report Type: Spontaneous
  Country: JP (occurrence: JP)
  Receive Date: 20250924
  Receipt Date: 20250924
  Transmission Date: 20251020
  Serious: Yes (Death)
  Sender: CHEPLAPHARM
  Company Number: JP-CHEPLA-2025011119

PATIENT
  Sex: Male
  Weight: 1.4839 kg

DRUGS (7)
  1. OLANZAPINE [Suspect]
     Active Substance: OLANZAPINE
     Route: 064
  2. BROMAZEPAM [Suspect]
     Active Substance: BROMAZEPAM
     Route: 064
  3. ESZOPICLONE [Suspect]
     Active Substance: ESZOPICLONE
     Route: 064
  4. PROPOFOL [Suspect]
     Active Substance: PROPOFOL
     Route: 064
  5. ROCURONIUM BROMIDE [Suspect]
     Active Substance: ROCURONIUM BROMIDE
     Route: 064
  6. FENTANYL [Suspect]
     Active Substance: FENTANYL
     Route: 064
  7. RITODRINE HYDROCHLORIDE [Suspect]
     Active Substance: RITODRINE HYDROCHLORIDE
     Route: 064

REACTIONS (2)
  - Foetal death [Fatal]
  - Foetal exposure during pregnancy [Unknown]
